FAERS Safety Report 10540888 (Version 1)
Quarter: 2014Q4

REPORT INFORMATION
  Report Type: Spontaneous
  Country: US (occurrence: US)
  Receive Date: 20141024
  Receipt Date: 20141024
  Transmission Date: 20150529
  Serious: No
  Sender: FDA-Public Use
  Company Number: US-PFIZER INC-2014291992

PATIENT
  Age: 68 Year
  Sex: Female

DRUGS (2)
  1. LEVOXYL [Suspect]
     Active Substance: LEVOTHYROXINE SODIUM
     Indication: HYPOTHYROIDISM
     Dosage: UNK
     Dates: end: 20140624
  2. ARMOUR THYROID [Suspect]
     Active Substance: THYROID, PORCINE\THYROID, UNSPECIFIED
     Indication: HYPOTHYROIDISM
     Dosage: UNK
     Dates: end: 20140624

REACTIONS (8)
  - Feeling abnormal [Unknown]
  - Affect lability [Unknown]
  - Acne [Unknown]
  - Seborrhoea [Unknown]
  - Nausea [Unknown]
  - Agitation [Unknown]
  - Headache [Unknown]
  - Tremor [Unknown]
